FAERS Safety Report 7587599-1 (Version None)
Quarter: 2011Q3

REPORT INFORMATION
  Report Type: 
  Country: None (occurrence: None)
  Receive Date: 20110704
  Receipt Date: 20110622
  Transmission Date: 20111222
  Serious: Yes (Hospitalization)
  Sender: FDA-Public Use
  Company Number: PHHY2011JP55365

PATIENT
  Age: 74 Year
  Sex: Female
  Weight: 38 kg

DRUGS (7)
  1. LEVODOPA [Concomitant]
     Dosage: 300 MG, UNK
     Route: 048
  2. ENTACAPONE [Suspect]
     Dosage: 300 MG, UNK
     Route: 048
  3. PRAMIPEXOLE DIHYDROCHLORIDE [Concomitant]
     Indication: PARKINSON'S DISEASE
     Dosage: 2.5 MG, UNK
     Route: 048
  4. ENTACAPONE [Suspect]
     Indication: DRUG EFFECT DECREASED
     Dosage: 400 MG, UNK
     Route: 048
     Dates: start: 20080601, end: 20080101
  5. LEVODOPA [Concomitant]
     Indication: PARKINSON'S DISEASE
     Dosage: 400 MG, UNK
     Route: 048
  6. LEVODOPA [Concomitant]
     Dosage: 200 MG, UNK
     Route: 048
  7. ENTACAPONE [Suspect]
     Dosage: 200 MG, UNK
     Route: 048
     Dates: start: 20080101

REACTIONS (2)
  - RESPIRATORY FAILURE [None]
  - DYSKINESIA [None]
